FAERS Safety Report 9720890 (Version 1)
Quarter: 2013Q4

REPORT INFORMATION
  Report Type: Report from Study
  Country: CA (occurrence: CA)
  Receive Date: 20131129
  Receipt Date: 20131129
  Transmission Date: 20140711
  Serious: Yes (Hospitalization)
  Sender: FDA-Public Use
  Company Number: CA-JNJFOC-20131115326

PATIENT
  Age: 39 Year
  Sex: Female
  Weight: 47 kg

DRUGS (5)
  1. REMICADE [Suspect]
     Indication: ANKYLOSING SPONDYLITIS
     Route: 042
     Dates: start: 201302
  2. BENADRYL [Concomitant]
     Route: 048
  3. EPIPEN [Concomitant]
     Route: 065
  4. VENTOLIN [Concomitant]
     Dosage: PRN
     Route: 065
  5. CLONAZEPAM [Concomitant]
     Dosage: HOUR OF SLEEP
     Route: 065

REACTIONS (5)
  - Dyspnoea [Recovered/Resolved]
  - Flushing [Recovered/Resolved]
  - Chills [Recovered/Resolved]
  - Abdominal pain [Recovered/Resolved]
  - Paraesthesia [Recovered/Resolved]
